FAERS Safety Report 8200867-5 (Version None)
Quarter: 2012Q1

REPORT INFORMATION
  Report Type: 
  Country: None (occurrence: None)
  Receive Date: 20120312
  Receipt Date: 20110622
  Transmission Date: 20120608
  Serious: No
  Sender: FDA-Public Use
  Company Number: US-ABBOTT-11P-163-0734540-00

PATIENT
  Sex: Female
  Weight: 77.18 kg

DRUGS (1)
  1. LUPRON DEPOT [Suspect]
     Indication: ENDOMETRIOSIS
     Route: 030
     Dates: start: 20110329, end: 20110329

REACTIONS (4)
  - VOMITING [None]
  - ASTHENIA [None]
  - PAIN [None]
  - VAGINAL HAEMORRHAGE [None]
